FAERS Safety Report 14227365 (Version 2)
Quarter: 2017Q4

REPORT INFORMATION
  Report Type: Spontaneous
  Country: US (occurrence: US)
  Receive Date: 20171127
  Receipt Date: 20171204
  Transmission Date: 20180321
  Serious: No
  Sender: FDA-Public Use
  Company Number: US-009507513-1711USA007054

PATIENT
  Sex: Female

DRUGS (4)
  1. ZOFRAN [Concomitant]
     Active Substance: ONDANSETRON HYDROCHLORIDE
  2. TYLENOL [Concomitant]
     Active Substance: ACETAMINOPHEN
  3. INTRON A [Suspect]
     Active Substance: INTERFERON ALFA-2B
     Dosage: 0.5 ML, Q3W
     Route: 058
     Dates: start: 201706
  4. PRILOSEC [Concomitant]
     Active Substance: OMEPRAZOLE MAGNESIUM

REACTIONS (2)
  - Third trimester pregnancy [Unknown]
  - Fatigue [Unknown]

NARRATIVE: CASE EVENT DATE: 2017
